FAERS Safety Report 7035164-7 (Version None)
Quarter: 2010Q4

REPORT INFORMATION
  Report Type: 
  Country: None (occurrence: None)
  Receive Date: 20101008
  Receipt Date: 20100927
  Transmission Date: 20110411
  Serious: Yes (Other)
  Sender: FDA-Public Use
  Company Number: FR-BAYER-201041118GPV

PATIENT
  Age: 85 Year
  Sex: Male

DRUGS (11)
  1. GLUCOR [Suspect]
     Indication: DIABETES MELLITUS
     Dosage: TOTAL DAILY DOSE: 150 MG
     Route: 048
  2. ESTRACYT [Suspect]
     Indication: PROSTATE CANCER
     Dosage: TOTAL DAILY DOSE: 140 MG
     Route: 048
     Dates: start: 20100101
  3. CAPTOPRIL [Suspect]
     Indication: HYPERTENSION
     Dosage: TOTAL DAILY DOSE: 150 MG
     Route: 048
     Dates: end: 20100601
  4. GABAPENTIN [Suspect]
     Dosage: AS USED: 100 MG
     Route: 048
  5. TAHOR [Suspect]
     Dosage: TOTAL DAILY DOSE: 80 MG
     Route: 048
  6. FLUDEX [Suspect]
     Indication: HYPERTENSION
     Dosage: TOTAL DAILY DOSE: 1.5 MG
     Route: 048
  7. AERIUS [Suspect]
     Dosage: TOTAL DAILY DOSE: 5 MG
     Route: 048
  8. NOVONORM [Suspect]
     Indication: DIABETES MELLITUS
     Dosage: TOTAL DAILY DOSE: 12 MG
     Route: 048
  9. DILTIAZEM [Suspect]
     Dosage: TOTAL DAILY DOSE: 300 MG
     Route: 048
  10. ALLOPURINOL [Suspect]
     Dosage: AS USED: 200 MG
     Route: 048
  11. LANTUS [Suspect]
     Indication: DIABETES MELLITUS
     Dosage: 18 IU IN THE MORNING
     Route: 058

REACTIONS (1)
  - FACE OEDEMA [None]
